FAERS Safety Report 6815285-1 (Version None)
Quarter: 2010Q3

REPORT INFORMATION
  Report Type: 
  Country: None (occurrence: None)
  Receive Date: 20100701
  Receipt Date: 20100701
  Transmission Date: 20110219
  Serious: Yes (Other)
  Sender: FDA-Public Use
  Company Number: None

PATIENT
  Age: 64 Year
  Sex: Female
  Weight: 89.8122 kg

DRUGS (1)
  1. RECLAST [Suspect]
     Indication: OSTEOPENIA
     Dosage: INTERENOUS
     Dates: start: 20100525, end: 20100526

REACTIONS (9)
  - CONFUSIONAL STATE [None]
  - DECREASED APPETITE [None]
  - DEPRESSION [None]
  - FAECES DISCOLOURED [None]
  - HAEMATOTOXICITY [None]
  - HEADACHE [None]
  - INFUSION RELATED REACTION [None]
  - PAIN [None]
  - URINARY TRACT INFECTION [None]
